FAERS Safety Report 15543552 (Version 3)
Quarter: 2018Q4

REPORT INFORMATION
  Report Type: Report from Study
  Country: US (occurrence: US)
  Receive Date: 20181023
  Receipt Date: 20181207
  Transmission Date: 20190205
  Serious: No
  Sender: FDA-Public Use
  Company Number: US-SA-2018SA290709

PATIENT
  Age: 73 Year
  Sex: Female

DRUGS (2)
  1. ALIROCUMAB [Suspect]
     Active Substance: ALIROCUMAB
     Indication: HYPERCHOLESTEROLAEMIA
     Dosage: 150 MG, QOW
     Dates: start: 20180911, end: 20180926
  2. ALIROCUMAB [Suspect]
     Active Substance: ALIROCUMAB
     Dosage: 150 UNK
     Route: 058

REACTIONS (16)
  - Chest discomfort [Recovering/Resolving]
  - Asthenia [Recovering/Resolving]
  - Feeling abnormal [Unknown]
  - Chest pain [Recovering/Resolving]
  - Paranasal sinus hypersecretion [Recovering/Resolving]
  - Breast pain [Recovering/Resolving]
  - Muscle spasms [Unknown]
  - Nausea [Recovering/Resolving]
  - Condition aggravated [Unknown]
  - Exercise tolerance decreased [Recovering/Resolving]
  - Choking sensation [Recovering/Resolving]
  - Rhinorrhoea [Recovering/Resolving]
  - Abdominal pain upper [Recovering/Resolving]
  - Fatigue [Recovering/Resolving]
  - Pharyngeal oedema [Recovering/Resolving]
  - Respiratory tract congestion [Recovering/Resolving]

NARRATIVE: CASE EVENT DATE: 20180911
